FAERS Safety Report 9457450 (Version 2)
Quarter: 2013Q3

REPORT INFORMATION
  Report Type: Spontaneous
  Country: FR (occurrence: FR)
  Receive Date: 20130814
  Receipt Date: 20130927
  Transmission Date: 20140515
  Serious: Yes (Other)
  Sender: FDA-Public Use
  Company Number: FR-JNJFOC-20130806111

PATIENT
  Sex: Female

DRUGS (5)
  1. SIMPONI [Suspect]
     Indication: PRODUCT USED FOR UNKNOWN INDICATION
     Route: 058
  2. SIMPONI [Suspect]
     Indication: PRODUCT USED FOR UNKNOWN INDICATION
     Route: 058
     Dates: start: 20130805
  3. BROMAZEPAM [Concomitant]
     Route: 065
  4. ECAZIDE [Concomitant]
     Route: 065
  5. TOPALGIC [Concomitant]
     Route: 065

REACTIONS (3)
  - Immediate post-injection reaction [Recovered/Resolved]
  - Rash erythematous [Recovered/Resolved]
  - Oedema mouth [Recovered/Resolved]
